FAERS Safety Report 8052156-X (Version None)
Quarter: 2012Q1

REPORT INFORMATION
  Report Type: 
  Country: None (occurrence: None)
  Receive Date: 20120118
  Receipt Date: 20120114
  Transmission Date: 20120608
  Serious: No
  Sender: FDA-Public Use
  Company Number: US-PFIZER INC-2012011019

PATIENT
  Sex: Female
  Weight: 61.2 kg

DRUGS (2)
  1. LYRICA [Suspect]
     Indication: NEURALGIA
     Dosage: 75 MG, 1X/DAY
     Route: 048
     Dates: start: 20111201, end: 20120107
  2. TEGRETOL [Concomitant]
     Dosage: UNK

REACTIONS (1)
  - DIZZINESS [None]
